FAERS Safety Report 25723096 (Version 1)
Quarter: 2025Q3

REPORT INFORMATION
  Report Type: Report from Study
  Country: US (occurrence: US)
  Receive Date: 20250825
  Receipt Date: 20250825
  Transmission Date: 20251021
  Serious: Yes (Other)
  Sender: TAKEDA
  Company Number: US-TAKEDA-2025TUS072390

PATIENT
  Age: 61 Year
  Sex: Male
  Weight: 81 kg

DRUGS (48)
  1. MARIBAVIR [Suspect]
     Active Substance: MARIBAVIR
     Indication: Cytomegalovirus infection
  2. MARIBAVIR [Suspect]
     Active Substance: MARIBAVIR
     Indication: Lymphocyte adoptive therapy
  3. ACYCLOVIR [Concomitant]
     Active Substance: ACYCLOVIR
     Dosage: 400 MILLIGRAM, Q12H
  4. ACYCLOVIR [Concomitant]
     Active Substance: ACYCLOVIR
     Dosage: 400 MILLIGRAM, BID
  5. AMITRIPTYLINE HYDROCHLORIDE [Concomitant]
     Active Substance: AMITRIPTYLINE HYDROCHLORIDE
     Dosage: 50 MILLIGRAM, QD
  6. AMLODIPINE [Concomitant]
     Active Substance: AMLODIPINE BESYLATE
     Dosage: 5 MILLIGRAM, QD
  7. CALCIUM\VITAMIN D [Concomitant]
     Active Substance: CALCIUM\VITAMIN D
     Dosage: UNK UNK, QD
  8. CETIRIZINE [Concomitant]
     Active Substance: CETIRIZINE HYDROCHLORIDE
     Dosage: 5 MILLIGRAM, QD
  9. CYANOCOBALAMIN [Concomitant]
     Active Substance: CYANOCOBALAMIN
     Dosage: 1000 MICROGRAM, QD
  10. ELTROMBOPAG OLAMINE [Concomitant]
     Active Substance: ELTROMBOPAG OLAMINE
     Dosage: UNK UNK, QD
  11. EPOETIN ALFA [Concomitant]
     Active Substance: ERYTHROPOIETIN
     Dosage: UNK, 1/WEEK
  12. FENTANYL [Concomitant]
     Active Substance: FENTANYL
     Dosage: UNK UNK, Q72H
  13. FLUOXETINE [Concomitant]
     Active Substance: FLUOXETINE HYDROCHLORIDE
     Dosage: 10 MILLIGRAM, QD
  14. FOLIC ACID [Concomitant]
     Active Substance: FOLIC ACID
     Dosage: 1 MILLIGRAM, QD
  15. GABAPENTIN [Concomitant]
     Active Substance: GABAPENTIN
     Dosage: 100 MILLIGRAM, Q12H
  16. HYDROCORTISONE [Concomitant]
     Active Substance: HYDROCORTISONE
     Dosage: 5 MILLIGRAM, QD
  17. LIDOCAINE [Concomitant]
     Active Substance: LIDOCAINE
     Dosage: UNK UNK, QD
  18. MAGNESIUM SULFATE [Concomitant]
     Active Substance: MAGNESIUM SULFATE
     Dosage: 2 GRAM, Q2HR
  19. MARIBAVIR [Concomitant]
     Active Substance: MARIBAVIR
     Dosage: 400 MILLIGRAM, QID
  20. PANTOPRAZOLE [Concomitant]
     Active Substance: PANTOPRAZOLE
     Dosage: 40 MILLIGRAM, QD
  21. POLYETHYLENE GLYCOL 3350 [Concomitant]
     Active Substance: POLYETHYLENE GLYCOL 3350
     Dosage: 17 GRAM, QD
  22. POSACONAZOLE [Concomitant]
     Active Substance: POSACONAZOLE
     Dosage: 400 MILLIGRAM, QD
  23. PREDNISONE ACETATE [Concomitant]
     Active Substance: PREDNISONE ACETATE
     Dosage: 5 MILLIGRAM, QD
     Dates: start: 20250812
  24. SENNOSIDES [Concomitant]
     Active Substance: SENNOSIDES
     Dosage: UNK UNK, QD
  25. SIMETHICONE (DIMETHICONE) [Concomitant]
     Active Substance: DIMETHICONE
     Dosage: 80 MILLIGRAM, Q8HR
  26. TACROLIMUS [Concomitant]
     Active Substance: TACROLIMUS
     Dosage: 0.6 MILLIGRAM, Q12H
  27. DEXTRIN\WHEAT [Concomitant]
     Active Substance: ICODEXTRIN\WHEAT
     Dosage: 3 GRAM, TID
  28. ZINC OXIDE [Concomitant]
     Active Substance: ZINC OXIDE
     Dosage: UNK UNK, BID
     Route: 061
  29. DAPSONE [Concomitant]
     Active Substance: DAPSONE
     Indication: Haemolysis
  30. PENTAMIDINE [Concomitant]
     Active Substance: PENTAMIDINE
  31. ACETAMINOPHEN [Concomitant]
     Active Substance: ACETAMINOPHEN
     Dosage: 650 MILLIGRAM, Q4HR
  32. ALPRAZOLAM [Concomitant]
     Active Substance: ALPRAZOLAM
     Dosage: 0.5 MILLIGRAM, QD
  33. Artificial tears [Concomitant]
     Dosage: UNK UNK, Q4HR
  34. CAFFEINE [Concomitant]
     Active Substance: CAFFEINE
     Dosage: 200 MILLIGRAM, Q4HR
  35. DEXTROSE\WATER [Concomitant]
     Active Substance: DEXTROSE\WATER
  36. DICYCLOMINE [Concomitant]
     Active Substance: DICYCLOMINE HYDROCHLORIDE
     Dosage: 10 MILLIGRAM, BID
  37. DEXTROSE [Concomitant]
     Active Substance: DEXTROSE MONOHYDRATE
  38. HYDROMORPHONE [Concomitant]
     Active Substance: HYDROMORPHONE
  39. MUPIROCIN [Concomitant]
     Active Substance: MUPIROCIN
     Dosage: UNK UNK, TID
     Route: 061
  40. ONDANSETRON [Concomitant]
     Active Substance: ONDANSETRON
  41. OXYCODONE [Concomitant]
     Active Substance: OXYCODONE
  42. WITCH HAZEL [Concomitant]
     Active Substance: WITCH HAZEL
     Route: 061
  43. WHITE PETROLATUM [Concomitant]
     Active Substance: PETROLATUM
     Route: 061
  44. SUMATRIPTAN [Concomitant]
     Active Substance: SUMATRIPTAN
  45. CEFDINIR [Concomitant]
     Active Substance: CEFDINIR
  46. FLAGYL [Concomitant]
     Active Substance: METRONIDAZOLE\METRONIDAZOLE HYDROCHLORIDE
  47. CEFEPIME [Concomitant]
     Active Substance: CEFEPIME HYDROCHLORIDE
  48. PROTONIX [Concomitant]
     Active Substance: PANTOPRAZOLE SODIUM
     Indication: Lymphocyte adoptive therapy
     Dosage: 40 MILLIGRAM, BID

REACTIONS (10)
  - Adrenal insufficiency [Unknown]
  - Pleural effusion [Unknown]
  - Hypomagnesaemia [Unknown]
  - Arthralgia [Not Recovered/Not Resolved]
  - Pupillary light reflex tests abnormal [Unknown]
  - Oedema [Unknown]
  - Ecchymosis [Unknown]
  - Asthenia [Unknown]
  - Pain of skin [Recovered/Resolved]
  - Headache [Recovering/Resolving]

NARRATIVE: CASE EVENT DATE: 20250724
